FAERS Safety Report 12257772 (Version 2)
Quarter: 2016Q2

REPORT INFORMATION
  Report Type: Spontaneous
  Country: JP (occurrence: JP)
  Receive Date: 20160412
  Receipt Date: 20160419
  Transmission Date: 20160815
  Serious: Yes (Other)
  Sender: FDA-Public Use
  Company Number: JP-ABBVIE-16P-087-1602572-00

PATIENT
  Age: 84 Year
  Sex: Male

DRUGS (3)
  1. NORVIR [Suspect]
     Active Substance: RITONAVIR
     Indication: HIV INFECTION
     Dosage: 1200 MG DAILY
     Route: 048
  2. ATAZANAVIR SULFATE [Concomitant]
     Active Substance: ATAZANAVIR SULFATE
     Indication: PRODUCT USED FOR UNKNOWN INDICATION
  3. ABACAVIR SULFATE W/LAMIVUDINE [Concomitant]
     Active Substance: ABACAVIR\LAMIVUDINE
     Indication: PRODUCT USED FOR UNKNOWN INDICATION

REACTIONS (6)
  - Pyrexia [Unknown]
  - Neoplasm [Unknown]
  - Vomiting [Unknown]
  - Asthenia [Unknown]
  - Pneumonia [Unknown]
  - Fall [Unknown]

NARRATIVE: CASE EVENT DATE: 20160405
